FAERS Safety Report 11408817 (Version 1)
Quarter: 2015Q3

REPORT INFORMATION
  Report Type: Spontaneous
  Country: US (occurrence: US)
  Receive Date: 20150823
  Receipt Date: 20150823
  Transmission Date: 20151125
  Serious: No
  Sender: FDA-Public Use
  Company Number: US-GLAXOSMITHKLINE-US2015GSK096825

PATIENT
  Age: 80 Year
  Sex: Male

DRUGS (1)
  1. VOTRIENT [Suspect]
     Active Substance: PAZOPANIB HYDROCHLORIDE
     Indication: NEOPLASM MALIGNANT
     Dosage: 800 MG, QD
     Route: 048
     Dates: start: 20150505

REACTIONS (5)
  - Muscular weakness [Unknown]
  - Decreased appetite [Unknown]
  - Nausea [Unknown]
  - Dry mouth [Unknown]
  - Dry skin [Unknown]

NARRATIVE: CASE EVENT DATE: 201506
